FAERS Safety Report 9643170 (Version 1)
Quarter: 2013Q4

REPORT INFORMATION
  Report Type: Spontaneous
  Country: US (occurrence: US)
  Receive Date: 20131024
  Receipt Date: 20131024
  Transmission Date: 20140711
  Serious: Yes (Other)
  Sender: FDA-Public Use
  Company Number: US-MALLINCKRODT-T201304639

PATIENT
  Age: 57 Year
  Sex: Female

DRUGS (2)
  1. SODIUM IODIDE (I 131) [Suspect]
     Indication: FOLLICULAR THYROID CANCER
     Route: 065
  2. SODIUM IODIDE (I 131) [Suspect]
     Indication: METASTATIC NEOPLASM

REACTIONS (2)
  - Osteonecrosis [Unknown]
  - Drug ineffective [Unknown]
